FAERS Safety Report 8420746-8 (Version None)
Quarter: 2012Q2

REPORT INFORMATION
  Report Type: 
  Country: None (occurrence: None)
  Receive Date: 20120608
  Receipt Date: 20120606
  Transmission Date: 20120825
  Serious: No
  Sender: FDA-Public Use
  Company Number: US-PFIZER INC-2012135705

PATIENT
  Sex: Male
  Weight: 82.54 kg

DRUGS (1)
  1. VIAGRA [Suspect]
     Indication: ERECTILE DYSFUNCTION
     Dosage: 50 MG, AS NEEDED
     Route: 048
     Dates: start: 20120603

REACTIONS (3)
  - EJACULATION DISORDER [None]
  - THERAPEUTIC RESPONSE UNEXPECTED [None]
  - DISTURBANCE IN SEXUAL AROUSAL [None]
